FAERS Safety Report 7338692-X (Version None)
Quarter: 2011Q1

REPORT INFORMATION
  Report Type: 
  Country: None (occurrence: None)
  Receive Date: 20110308
  Receipt Date: 20110117
  Transmission Date: 20110831
  Serious: Yes (Other)
  Sender: FDA-Public Use
  Company Number: A0906377A

PATIENT
  Sex: Female

DRUGS (10)
  1. CLONAZEPAM [Concomitant]
     Route: 065
  2. VITAMIN D [Concomitant]
     Route: 065
  3. XELODA [Concomitant]
  4. MULTI-VITAMIN [Concomitant]
     Route: 065
  5. TYKERB [Suspect]
     Dosage: 1250MG PER DAY
     Route: 048
     Dates: start: 20110107
  6. EFFEXOR [Concomitant]
     Route: 065
  7. VITAMIN B6 [Concomitant]
     Route: 065
  8. MORPHINE [Concomitant]
     Route: 065
  9. CALCIUM [Concomitant]
     Route: 065
  10. STEMETIL [Concomitant]
     Route: 065

REACTIONS (8)
  - BLOOD BILIRUBIN INCREASED [None]
  - DERMATITIS ACNEIFORM [None]
  - PALMAR-PLANTAR ERYTHRODYSAESTHESIA SYNDROME [None]
  - RASH PRURITIC [None]
  - INSOMNIA [None]
  - SKIN CHAPPED [None]
  - ERYTHEMA [None]
  - DIARRHOEA [None]
